FAERS Safety Report 5748814-X (Version None)
Quarter: 2008Q2

REPORT INFORMATION
  Report Type: 
  Country: None (occurrence: None)
  Receive Date: 20080522
  Receipt Date: 20080505
  Transmission Date: 20081010
  Serious: Yes (Hospitalization)
  Sender: FDA-Public Use
  Company Number: 2008AL003426

PATIENT
  Age: 83 Year
  Sex: Female
  Weight: 58.9676 kg

DRUGS (14)
  1. DIGOXIN [Suspect]
     Indication: ARRHYTHMIA
     Dosage: 0.125MG DAILY PO
     Route: 048
  2. INSULIN [Concomitant]
  3. LASIX [Concomitant]
  4. K-DUR [Concomitant]
  5. PRILOSEC [Concomitant]
  6. PLAVIX [Concomitant]
  7. ASPIRIN [Concomitant]
  8. AVAPRO [Concomitant]
  9. ZOCOR [Concomitant]
  10. ARACEPT [Concomitant]
  11. DARVACET [Concomitant]
  12. XANAX [Concomitant]
  13. MIRAPEX [Concomitant]
  14. PHENERGAN [Concomitant]

REACTIONS (3)
  - DIZZINESS [None]
  - LOSS OF CONSCIOUSNESS [None]
  - NAUSEA [None]
